FAERS Safety Report 8151276-9 (Version None)
Quarter: 2012Q1

REPORT INFORMATION
  Report Type: 
  Country: None (occurrence: None)
  Receive Date: 20120220
  Receipt Date: 20120214
  Transmission Date: 20120608
  Serious: Yes (Death, Hospitalization, Other)
  Sender: FDA-Public Use
  Company Number: US-BAYER-200940713NA

PATIENT
  Age: 79 Year
  Sex: Male
  Weight: 80.726 kg

DRUGS (39)
  1. AMLODIPINE [Concomitant]
  2. ATENOLOL [Concomitant]
  3. SINGULAIR [Concomitant]
  4. PRIMACOR [Concomitant]
     Dosage: UNK
     Dates: start: 20060701
  5. NITROGLYCERIN [Concomitant]
  6. SUFENTANIL CITRATE [Concomitant]
  7. PLATELETS [Concomitant]
     Dosage: 2 U, UNK
     Dates: start: 20060701
  8. LEVOPHED [Concomitant]
     Dosage: UNK
     Dates: start: 20060701
  9. PRAVACHOL [Concomitant]
  10. PEPCID AC [Concomitant]
  11. CHONDROITIN [Concomitant]
  12. ALBUMEN [Concomitant]
  13. RESTORIL [Concomitant]
     Dosage: 15MG
     Route: 048
     Dates: start: 20060630
  14. ACETYLSALICYLIC ACID SRT [Concomitant]
  15. CALCITONIN SALMON [Concomitant]
  16. GLUCOSAMINE [GLUCOSAMINE] [Concomitant]
  17. CARDIOPLEGIA [Concomitant]
  18. COZAAR [Concomitant]
  19. FRESH FROZEN PLASMA [Concomitant]
     Dosage: 4 U, UNK
     Dates: start: 20060701
  20. CRYOPRECIPITATES [Concomitant]
     Dosage: 10 U, UNK
     Dates: start: 20060701
  21. MS CONTIN [Concomitant]
  22. DOPAMINE HCL [Concomitant]
  23. MIDAZOLAM [Concomitant]
  24. INSULIN [INSULIN] [Concomitant]
  25. PLAVIX [Concomitant]
  26. VICODIN [Concomitant]
  27. PROTAMINE SULFATE [Concomitant]
  28. MANNITOL [Concomitant]
  29. TRASYLOL [Suspect]
     Indication: CORONARY ARTERY BYPASS
     Dosage: TEST DOSE: 200ML APOTRONIN PUMP PRIME
     Route: 042
     Dates: start: 20060701, end: 20060701
  30. TRASYLOL [Suspect]
     Indication: AORTIC VALVE REPLACEMENT
     Dosage: LOADING DOSE: ILLEGIBLE
  31. SPIRIVA [Concomitant]
  32. ADVAIR DISKUS 100/50 [Concomitant]
  33. PANCURONIUM BROMIDE [Concomitant]
  34. MAGNESIUM SULFATE [Concomitant]
  35. RED BLOOD CELLS [Concomitant]
     Dosage: 7 U, UNK
     Dates: start: 20060701
  36. FACTOR VII [Concomitant]
     Dosage: UNK
     Dates: start: 20060701
  37. MIACALCIN [Concomitant]
     Dosage: NASAL SPRAY
  38. HEPARIN [Concomitant]
     Dosage: 1000 ML, UNK
     Route: 042
  39. PROTONIX [Concomitant]
     Dosage: 40 MG, QD
     Route: 042
     Dates: start: 20060630

REACTIONS (14)
  - DEATH [None]
  - RENAL FAILURE [None]
  - MULTI-ORGAN FAILURE [None]
  - UNEVALUABLE EVENT [None]
  - PAIN [None]
  - ANXIETY [None]
  - FEAR [None]
  - INJURY [None]
  - RENAL INJURY [None]
  - ANHEDONIA [None]
  - EMOTIONAL DISTRESS [None]
  - STRESS [None]
  - RENAL IMPAIRMENT [None]
  - PSYCHOLOGICAL TRAUMA [None]
